FAERS Safety Report 15676040 (Version 1)
Quarter: 2018Q4

REPORT INFORMATION
  Report Type: Spontaneous
  Country: US (occurrence: US)
  Receive Date: 20181129
  Receipt Date: 20181129
  Transmission Date: 20190205
  Serious: Yes (Other)
  Sender: FDA-Public Use
  Company Number: None

PATIENT
  Age: 50 Year
  Sex: Male
  Weight: 67.05 kg

DRUGS (10)
  1. DULOXETINE. [Concomitant]
     Active Substance: DULOXETINE
  2. PRAZOSIN. [Concomitant]
     Active Substance: PRAZOSIN
  3. AMITRIPTALINE [Concomitant]
     Active Substance: AMITRIPTYLINE
  4. STRATTERA [Concomitant]
     Active Substance: ATOMOXETINE HYDROCHLORIDE
  5. GABAPENTINE [Concomitant]
     Active Substance: GABAPENTIN
  6. VITAMIN D3 [Concomitant]
     Active Substance: CHOLECALCIFEROL
  7. VITAMIN C [Suspect]
     Active Substance: ASCORBIC ACID
  8. MEN^S MULTIVIATAMIN WITH IRON [Concomitant]
  9. XIFAXAN [Suspect]
     Active Substance: RIFAXIMIN
     Indication: GASTRIC INFECTION
     Dosage: ?          QUANTITY:42 TABLET(S);?
     Route: 048
     Dates: start: 20181114, end: 20181129
  10. CITRUCELL [Concomitant]

REACTIONS (4)
  - Nausea [None]
  - Abdominal distension [None]
  - Dizziness [None]
  - Fatigue [None]

NARRATIVE: CASE EVENT DATE: 20181114
